FAERS Safety Report 22205155 (Version 3)
Quarter: 2023Q2

REPORT INFORMATION
  Report Type: Spontaneous
  Country: US (occurrence: US)
  Receive Date: 20230413
  Receipt Date: 20230605
  Transmission Date: 20230722
  Serious: No
  Sender: FDA-Public Use
  Company Number: US-BIOGEN-2023BI01198735

PATIENT
  Age: 38 Year
  Sex: Female
  Weight: 60.78 kg

DRUGS (7)
  1. TYSABRI [Suspect]
     Active Substance: NATALIZUMAB
     Indication: Multiple sclerosis
     Dosage: INFUSED OVER ONE HOUR
     Route: 050
     Dates: start: 202206, end: 202211
  2. TYSABRI [Suspect]
     Active Substance: NATALIZUMAB
     Route: 050
     Dates: start: 20220705, end: 20221101
  3. TYSABRI [Suspect]
     Active Substance: NATALIZUMAB
     Route: 050
     Dates: start: 20230420
  4. Cynocobalamin [Concomitant]
     Dosage: 1 TABLET EVERY DAY VIA ORAL ROUTE
     Route: 050
     Dates: start: 20230330
  5. DOXEPIN [Concomitant]
     Active Substance: DOXEPIN
     Dosage: 1 CAPSULE EVERY DAY VIA ORAL ROUTE AT BEDTIME
     Route: 050
     Dates: start: 20230330
  6. LORATADINE [Concomitant]
     Active Substance: LORATADINE
     Dosage: 1 CAPSULE EVERY DAY VIA ORAL ROUTE
     Route: 050
     Dates: start: 20230330
  7. SERTRALINE [Concomitant]
     Active Substance: SERTRALINE HYDROCHLORIDE
     Dosage: 1 TABLET EVERY DAY VIA ORAL ROUTE
     Route: 050
     Dates: start: 20230330

REACTIONS (2)
  - Multiple sclerosis [Not Recovered/Not Resolved]
  - White coat hypertension [Recovered/Resolved]

NARRATIVE: CASE EVENT DATE: 20220705
